FAERS Safety Report 10873273 (Version 1)
Quarter: 2015Q1

REPORT INFORMATION
  Report Type: Report from Study
  Country: PL (occurrence: PL)
  Receive Date: 20150227
  Receipt Date: 20150227
  Transmission Date: 20150721
  Serious: Yes (Other)
  Sender: FDA-Public Use
  Company Number: PL-BAYER-2015-027374

PATIENT
  Sex: Female

DRUGS (2)
  1. BETAFERON [Suspect]
     Active Substance: INTERFERON BETA-1B
     Indication: MULTIPLE SCLEROSIS
     Dosage: UNK
     Route: 058
     Dates: start: 2010
  2. TYSABRI [Concomitant]
     Active Substance: NATALIZUMAB
     Dosage: UNK

REACTIONS (3)
  - Multiple sclerosis relapse [None]
  - Drug ineffective [None]
  - Multiple sclerosis [None]
